FAERS Safety Report 6138329-1 (Version None)
Quarter: 2009Q1

REPORT INFORMATION
  Report Type: 
  Country: None (occurrence: None)
  Receive Date: 20090327
  Receipt Date: 20090308
  Transmission Date: 20090719
  Serious: Yes (Other)
  Sender: FDA-Public Use
  Company Number: 2007S1006822

PATIENT
  Age: 68 Year
  Sex: Female
  Weight: 80.2867 kg

DRUGS (11)
  1. PHOSPHOSODA FLAVOR NOT SPECIFIED [Suspect]
     Indication: COLONOSCOPY
     Dosage: 90 ML; TOTAL; PO
     Route: 048
     Dates: start: 20050926, end: 20050927
  2. GEMFIBROZIL [Concomitant]
  3. MAXZIDE [Concomitant]
  4. SULINDAC [Concomitant]
  5. SYNTHROID [Concomitant]
  6. METFORMIN HCL [Concomitant]
  7. LISINOPRIL [Concomitant]
  8. DARVOCET /00220901/ [Concomitant]
  9. RENAGEL /01459901/ [Concomitant]
  10. PROTONIX /01263201/ [Concomitant]
  11. HYOSCYAMINE [Concomitant]

REACTIONS (9)
  - ABDOMINAL PAIN UPPER [None]
  - ANXIETY [None]
  - ASTHENIA [None]
  - DIARRHOEA [None]
  - ILL-DEFINED DISORDER [None]
  - INJURY [None]
  - NEPHROPATHY [None]
  - RENAL FAILURE ACUTE [None]
  - RENAL FAILURE CHRONIC [None]
